FAERS Safety Report 5425135-6 (Version None)
Quarter: 2007Q3

REPORT INFORMATION
  Report Type: 
  Country: None (occurrence: None)
  Receive Date: 20070824
  Receipt Date: 20070815
  Transmission Date: 20080115
  Serious: Yes (Hospitalization)
  Sender: FDA-Public Use
  Company Number: US-ROCHE-511871

PATIENT
  Age: 47 Year
  Sex: Male

DRUGS (4)
  1. PEGASYS [Suspect]
     Route: 065
     Dates: start: 20070513
  2. RIBAVIRIN [Suspect]
     Route: 065
     Dates: start: 20070513
  3. LITHIUM CARBONATE [Suspect]
     Indication: BIPOLAR DISORDER
     Route: 065
  4. LAMICTAL [Concomitant]

REACTIONS (3)
  - COMA [None]
  - NEUROLOGICAL SYMPTOM [None]
  - THERAPEUTIC AGENT TOXICITY [None]
